FAERS Safety Report 25330296 (Version 1)
Quarter: 2025Q2

REPORT INFORMATION
  Report Type: Report from Study
  Country: KR (occurrence: KR)
  Receive Date: 20250519
  Receipt Date: 20250519
  Transmission Date: 20250716
  Serious: Yes (Hospitalization)
  Sender: MYLAN
  Company Number: KR-MYLANLABS-2025M1041098

PATIENT
  Sex: Female
  Weight: 48.5 kg

DRUGS (92)
  1. CELEBREX [Suspect]
     Active Substance: CELECOXIB
     Indication: Rheumatoid arthritis
     Dosage: 200 MILLIGRAM, BID (EVERY 12 HOURS)
     Dates: start: 20220526
  2. CELEBREX [Suspect]
     Active Substance: CELECOXIB
     Dosage: 200 MILLIGRAM, BID (EVERY 12 HOURS)
     Route: 048
     Dates: start: 20220526
  3. CELEBREX [Suspect]
     Active Substance: CELECOXIB
     Dosage: 200 MILLIGRAM, BID (EVERY 12 HOURS)
     Route: 048
     Dates: start: 20220526
  4. CELEBREX [Suspect]
     Active Substance: CELECOXIB
     Dosage: 200 MILLIGRAM, BID (EVERY 12 HOURS)
     Dates: start: 20220526
  5. PREGABALIN [Suspect]
     Active Substance: PREGABALIN
     Indication: Failed back surgery syndrome
     Dosage: 75 MILLIGRAM, BID (EVERY 12 HOURS)
     Dates: start: 20221213
  6. PREGABALIN [Suspect]
     Active Substance: PREGABALIN
     Dosage: 75 MILLIGRAM, BID (EVERY 12 HOURS)
     Route: 048
     Dates: start: 20221213
  7. PREGABALIN [Suspect]
     Active Substance: PREGABALIN
     Dosage: 75 MILLIGRAM, BID (EVERY 12 HOURS)
     Route: 048
     Dates: start: 20221213
  8. PREGABALIN [Suspect]
     Active Substance: PREGABALIN
     Dosage: 75 MILLIGRAM, BID (EVERY 12 HOURS)
     Dates: start: 20221213
  9. ADALIMUMAB [Suspect]
     Active Substance: ADALIMUMAB
     Indication: Rheumatoid arthritis
     Dosage: 40 MILLIGRAM, Q2W (ONCE EVERY 14 DAYS)
     Dates: start: 20220825, end: 20221201
  10. ADALIMUMAB [Suspect]
     Active Substance: ADALIMUMAB
     Dosage: 40 MILLIGRAM, Q2W (ONCE EVERY 14 DAYS)
     Dates: start: 20220825, end: 20221201
  11. ADALIMUMAB [Suspect]
     Active Substance: ADALIMUMAB
     Dosage: 40 MILLIGRAM, Q2W (ONCE EVERY 14 DAYS)
     Route: 058
     Dates: start: 20220825, end: 20221201
  12. ADALIMUMAB [Suspect]
     Active Substance: ADALIMUMAB
     Dosage: 40 MILLIGRAM, Q2W (ONCE EVERY 14 DAYS)
     Route: 058
     Dates: start: 20220825, end: 20221201
  13. ADALIMUMAB [Suspect]
     Active Substance: ADALIMUMAB
     Dates: start: 20221213, end: 20221213
  14. ADALIMUMAB [Suspect]
     Active Substance: ADALIMUMAB
     Dates: start: 20221213, end: 20221213
  15. ADALIMUMAB [Suspect]
     Active Substance: ADALIMUMAB
     Route: 058
     Dates: start: 20221213, end: 20221213
  16. ADALIMUMAB [Suspect]
     Active Substance: ADALIMUMAB
     Route: 058
     Dates: start: 20221213, end: 20221213
  17. ADALIMUMAB [Suspect]
     Active Substance: ADALIMUMAB
     Dosage: 40 MILLIGRAM, Q2W (ONCE EVERY 14 DAYS)
     Dates: start: 20221227
  18. ADALIMUMAB [Suspect]
     Active Substance: ADALIMUMAB
     Dosage: 40 MILLIGRAM, Q2W (ONCE EVERY 14 DAYS)
     Route: 058
     Dates: start: 20221227
  19. ADALIMUMAB [Suspect]
     Active Substance: ADALIMUMAB
     Dosage: 40 MILLIGRAM, Q2W (ONCE EVERY 14 DAYS)
     Dates: start: 20221227
  20. ADALIMUMAB [Suspect]
     Active Substance: ADALIMUMAB
     Dosage: 40 MILLIGRAM, Q2W (ONCE EVERY 14 DAYS)
     Route: 058
     Dates: start: 20221227
  21. METHOTREXATE [Suspect]
     Active Substance: METHOTREXATE
     Indication: Rheumatoid arthritis
     Dosage: 6 DOSAGE FORM, QW
  22. METHOTREXATE [Suspect]
     Active Substance: METHOTREXATE
     Dosage: 6 DOSAGE FORM, QW
     Route: 048
  23. METHOTREXATE [Suspect]
     Active Substance: METHOTREXATE
     Dosage: 6 DOSAGE FORM, QW
     Route: 048
  24. METHOTREXATE [Suspect]
     Active Substance: METHOTREXATE
     Dosage: 6 DOSAGE FORM, QW
  25. FOLIC ACID [Suspect]
     Active Substance: FOLIC ACID
     Indication: Rheumatoid arthritis
     Dosage: 1 MILLIGRAM, QD
  26. FOLIC ACID [Suspect]
     Active Substance: FOLIC ACID
     Dosage: 1 MILLIGRAM, QD
     Route: 048
  27. FOLIC ACID [Suspect]
     Active Substance: FOLIC ACID
     Dosage: 1 MILLIGRAM, QD
     Route: 048
  28. FOLIC ACID [Suspect]
     Active Substance: FOLIC ACID
     Dosage: 1 MILLIGRAM, QD
  29. REBAMIPIDE [Suspect]
     Active Substance: REBAMIPIDE
     Indication: Gastrointestinal disorder prophylaxis
     Dosage: 150 MILLIGRAM, BID (EVERY 12 HOURS)
     Dates: start: 20220526
  30. REBAMIPIDE [Suspect]
     Active Substance: REBAMIPIDE
     Dosage: 150 MILLIGRAM, BID (EVERY 12 HOURS)
     Route: 048
     Dates: start: 20220526
  31. REBAMIPIDE [Suspect]
     Active Substance: REBAMIPIDE
     Dosage: 150 MILLIGRAM, BID (EVERY 12 HOURS)
     Route: 048
     Dates: start: 20220526
  32. REBAMIPIDE [Suspect]
     Active Substance: REBAMIPIDE
     Dosage: 150 MILLIGRAM, BID (EVERY 12 HOURS)
     Dates: start: 20220526
  33. RISEDRONATE SODIUM [Suspect]
     Active Substance: RISEDRONATE SODIUM
     Indication: Osteoporosis
     Dosage: 35 MILLIGRAM, QW
     Dates: start: 20220609
  34. RISEDRONATE SODIUM [Suspect]
     Active Substance: RISEDRONATE SODIUM
     Dosage: 35 MILLIGRAM, QW
     Route: 048
     Dates: start: 20220609
  35. RISEDRONATE SODIUM [Suspect]
     Active Substance: RISEDRONATE SODIUM
     Dosage: 35 MILLIGRAM, QW
     Route: 048
     Dates: start: 20220609
  36. RISEDRONATE SODIUM [Suspect]
     Active Substance: RISEDRONATE SODIUM
     Dosage: 35 MILLIGRAM, QW
     Dates: start: 20220609
  37. ACETAMINOPHEN\TRAMADOL HYDROCHLORIDE [Suspect]
     Active Substance: ACETAMINOPHEN\TRAMADOL HYDROCHLORIDE
     Indication: Rheumatoid arthritis
     Dosage: 1 DOSAGE FORM, BID (EVERY 12 HOURS)
     Dates: start: 20220609
  38. ACETAMINOPHEN\TRAMADOL HYDROCHLORIDE [Suspect]
     Active Substance: ACETAMINOPHEN\TRAMADOL HYDROCHLORIDE
     Dosage: 1 DOSAGE FORM, BID (EVERY 12 HOURS)
     Route: 048
     Dates: start: 20220609
  39. ACETAMINOPHEN\TRAMADOL HYDROCHLORIDE [Suspect]
     Active Substance: ACETAMINOPHEN\TRAMADOL HYDROCHLORIDE
     Dosage: 1 DOSAGE FORM, BID (EVERY 12 HOURS)
     Route: 048
     Dates: start: 20220609
  40. ACETAMINOPHEN\TRAMADOL HYDROCHLORIDE [Suspect]
     Active Substance: ACETAMINOPHEN\TRAMADOL HYDROCHLORIDE
     Dosage: 1 DOSAGE FORM, BID (EVERY 12 HOURS)
     Dates: start: 20220609
  41. DEXAMETHASONE [Suspect]
     Active Substance: DEXAMETHASONE
     Indication: Rheumatoid arthritis
     Dosage: 5 MILLIGRAM, QD
     Dates: start: 20220922, end: 20220922
  42. DEXAMETHASONE [Suspect]
     Active Substance: DEXAMETHASONE
     Indication: Failed back surgery syndrome
     Dosage: 5 MILLIGRAM, QD
     Dates: start: 20220922, end: 20220922
  43. DEXAMETHASONE [Suspect]
     Active Substance: DEXAMETHASONE
     Dosage: 5 MILLIGRAM, QD
     Route: 042
     Dates: start: 20220922, end: 20220922
  44. DEXAMETHASONE [Suspect]
     Active Substance: DEXAMETHASONE
     Dosage: 5 MILLIGRAM, QD
     Route: 042
     Dates: start: 20220922, end: 20220922
  45. DEXAMETHASONE [Suspect]
     Active Substance: DEXAMETHASONE
     Dosage: 5 MILLIGRAM, QD
     Dates: start: 20221020, end: 20221020
  46. DEXAMETHASONE [Suspect]
     Active Substance: DEXAMETHASONE
     Dosage: 5 MILLIGRAM, QD
     Dates: start: 20221020, end: 20221020
  47. DEXAMETHASONE [Suspect]
     Active Substance: DEXAMETHASONE
     Dosage: 5 MILLIGRAM, QD
     Route: 042
     Dates: start: 20221020, end: 20221020
  48. DEXAMETHASONE [Suspect]
     Active Substance: DEXAMETHASONE
     Dosage: 5 MILLIGRAM, QD
     Route: 042
     Dates: start: 20221020, end: 20221020
  49. DEXAMETHASONE [Suspect]
     Active Substance: DEXAMETHASONE
     Dosage: 5 MILLIGRAM, QD
     Dates: start: 20221117, end: 20221117
  50. DEXAMETHASONE [Suspect]
     Active Substance: DEXAMETHASONE
     Dosage: 5 MILLIGRAM, QD
     Dates: start: 20221117, end: 20221117
  51. DEXAMETHASONE [Suspect]
     Active Substance: DEXAMETHASONE
     Dosage: 5 MILLIGRAM, QD
     Route: 042
     Dates: start: 20221117, end: 20221117
  52. DEXAMETHASONE [Suspect]
     Active Substance: DEXAMETHASONE
     Dosage: 5 MILLIGRAM, QD
     Route: 042
     Dates: start: 20221117, end: 20221117
  53. DEXAMETHASONE [Suspect]
     Active Substance: DEXAMETHASONE
     Dosage: 5 MILLIGRAM, QD
     Dates: start: 20221213, end: 20221213
  54. DEXAMETHASONE [Suspect]
     Active Substance: DEXAMETHASONE
     Dosage: 5 MILLIGRAM, QD
     Dates: start: 20221213, end: 20221213
  55. DEXAMETHASONE [Suspect]
     Active Substance: DEXAMETHASONE
     Dosage: 5 MILLIGRAM, QD
     Route: 065
     Dates: start: 20221213, end: 20221213
  56. DEXAMETHASONE [Suspect]
     Active Substance: DEXAMETHASONE
     Dosage: 5 MILLIGRAM, QD
     Route: 065
     Dates: start: 20221213, end: 20221213
  57. DEXAMETHASONE [Suspect]
     Active Substance: DEXAMETHASONE
     Dosage: 5 MILLIGRAM, QD
     Dates: start: 20230110, end: 20230110
  58. DEXAMETHASONE [Suspect]
     Active Substance: DEXAMETHASONE
     Dosage: 5 MILLIGRAM, QD
     Route: 042
     Dates: start: 20230110, end: 20230110
  59. DEXAMETHASONE [Suspect]
     Active Substance: DEXAMETHASONE
     Dosage: 5 MILLIGRAM, QD
     Dates: start: 20230110, end: 20230110
  60. DEXAMETHASONE [Suspect]
     Active Substance: DEXAMETHASONE
     Dosage: 5 MILLIGRAM, QD
     Route: 042
     Dates: start: 20230110, end: 20230110
  61. AMITRIPTYLINE HYDROCHLORIDE [Suspect]
     Active Substance: AMITRIPTYLINE HYDROCHLORIDE
     Indication: Fibromyalgia
     Dosage: 4 MILLIGRAM, BID (EVERY 12 HOURS)
     Route: 048
     Dates: start: 20220922
  62. AMITRIPTYLINE HYDROCHLORIDE [Suspect]
     Active Substance: AMITRIPTYLINE HYDROCHLORIDE
     Dosage: 4 MILLIGRAM, BID (EVERY 12 HOURS)
     Dates: start: 20220922
  63. AMITRIPTYLINE HYDROCHLORIDE [Suspect]
     Active Substance: AMITRIPTYLINE HYDROCHLORIDE
     Dosage: 4 MILLIGRAM, BID (EVERY 12 HOURS)
     Dates: start: 20220922
  64. AMITRIPTYLINE HYDROCHLORIDE [Suspect]
     Active Substance: AMITRIPTYLINE HYDROCHLORIDE
     Dosage: 4 MILLIGRAM, BID (EVERY 12 HOURS)
     Route: 048
     Dates: start: 20220922
  65. AMITRIPTYLINE HYDROCHLORIDE [Suspect]
     Active Substance: AMITRIPTYLINE HYDROCHLORIDE
     Dosage: 5 MILLIGRAM, QD
     Route: 048
     Dates: start: 20221020
  66. AMITRIPTYLINE HYDROCHLORIDE [Suspect]
     Active Substance: AMITRIPTYLINE HYDROCHLORIDE
     Dosage: 5 MILLIGRAM, QD
     Dates: start: 20221020
  67. AMITRIPTYLINE HYDROCHLORIDE [Suspect]
     Active Substance: AMITRIPTYLINE HYDROCHLORIDE
     Dosage: 5 MILLIGRAM, QD
     Dates: start: 20221020
  68. AMITRIPTYLINE HYDROCHLORIDE [Suspect]
     Active Substance: AMITRIPTYLINE HYDROCHLORIDE
     Dosage: 5 MILLIGRAM, QD
     Route: 048
     Dates: start: 20221020
  69. ACETAMINOPHEN\TRAMADOL HYDROCHLORIDE [Suspect]
     Active Substance: ACETAMINOPHEN\TRAMADOL HYDROCHLORIDE
     Indication: Fibromyalgia
     Dosage: 1 DOSAGE FORM, MONTHLY
     Dates: start: 20221020
  70. ACETAMINOPHEN\TRAMADOL HYDROCHLORIDE [Suspect]
     Active Substance: ACETAMINOPHEN\TRAMADOL HYDROCHLORIDE
     Dosage: 1 DOSAGE FORM, MONTHLY
     Route: 048
     Dates: start: 20221020
  71. ACETAMINOPHEN\TRAMADOL HYDROCHLORIDE [Suspect]
     Active Substance: ACETAMINOPHEN\TRAMADOL HYDROCHLORIDE
     Dosage: 1 DOSAGE FORM, MONTHLY
     Route: 048
     Dates: start: 20221020
  72. ACETAMINOPHEN\TRAMADOL HYDROCHLORIDE [Suspect]
     Active Substance: ACETAMINOPHEN\TRAMADOL HYDROCHLORIDE
     Dosage: 1 DOSAGE FORM, MONTHLY
     Dates: start: 20221020
  73. ROPIVACAINE HYDROCHLORIDE [Suspect]
     Active Substance: ROPIVACAINE HYDROCHLORIDE
     Indication: Failed back surgery syndrome
     Dosage: UNK, QD
     Dates: start: 20221213, end: 20221213
  74. ROPIVACAINE HYDROCHLORIDE [Suspect]
     Active Substance: ROPIVACAINE HYDROCHLORIDE
     Dosage: UNK, QD
     Dates: start: 20221213, end: 20221213
  75. ROPIVACAINE HYDROCHLORIDE [Suspect]
     Active Substance: ROPIVACAINE HYDROCHLORIDE
     Dosage: UNK, QD
     Route: 065
     Dates: start: 20221213, end: 20221213
  76. ROPIVACAINE HYDROCHLORIDE [Suspect]
     Active Substance: ROPIVACAINE HYDROCHLORIDE
     Dosage: UNK, QD
     Route: 065
     Dates: start: 20221213, end: 20221213
  77. ROPIVACAINE HYDROCHLORIDE [Suspect]
     Active Substance: ROPIVACAINE HYDROCHLORIDE
     Dosage: UNK, QD
     Dates: start: 20230117, end: 20230117
  78. ROPIVACAINE HYDROCHLORIDE [Suspect]
     Active Substance: ROPIVACAINE HYDROCHLORIDE
     Dosage: UNK, QD
     Dates: start: 20230117, end: 20230117
  79. ROPIVACAINE HYDROCHLORIDE [Suspect]
     Active Substance: ROPIVACAINE HYDROCHLORIDE
     Dosage: UNK, QD
     Route: 065
     Dates: start: 20230117, end: 20230117
  80. ROPIVACAINE HYDROCHLORIDE [Suspect]
     Active Substance: ROPIVACAINE HYDROCHLORIDE
     Dosage: UNK, QD
     Route: 065
     Dates: start: 20230117, end: 20230117
  81. HYDROCHLOROTHIAZIDE [Suspect]
     Active Substance: HYDROCHLOROTHIAZIDE
     Indication: Productive cough
     Dosage: 12.5 MILLIGRAM, QD
     Dates: start: 20230110
  82. HYDROCHLOROTHIAZIDE [Suspect]
     Active Substance: HYDROCHLOROTHIAZIDE
     Indication: Cough
     Dosage: 12.5 MILLIGRAM, QD
     Route: 048
     Dates: start: 20230110
  83. HYDROCHLOROTHIAZIDE [Suspect]
     Active Substance: HYDROCHLOROTHIAZIDE
     Dosage: 12.5 MILLIGRAM, QD
     Route: 048
     Dates: start: 20230110
  84. HYDROCHLOROTHIAZIDE [Suspect]
     Active Substance: HYDROCHLOROTHIAZIDE
     Dosage: 12.5 MILLIGRAM, QD
     Dates: start: 20230110
  85. CEFPODOXIME PROXETIL [Suspect]
     Active Substance: CEFPODOXIME PROXETIL
     Indication: Productive cough
     Dosage: 200 MILLIGRAM, BID (EVERY 12 HOURS)
     Dates: start: 20230110, end: 20230124
  86. CEFPODOXIME PROXETIL [Suspect]
     Active Substance: CEFPODOXIME PROXETIL
     Indication: Cough
     Dosage: 200 MILLIGRAM, BID (EVERY 12 HOURS)
     Route: 048
     Dates: start: 20230110, end: 20230124
  87. CEFPODOXIME PROXETIL [Suspect]
     Active Substance: CEFPODOXIME PROXETIL
     Dosage: 200 MILLIGRAM, BID (EVERY 12 HOURS)
     Route: 048
     Dates: start: 20230110, end: 20230124
  88. CEFPODOXIME PROXETIL [Suspect]
     Active Substance: CEFPODOXIME PROXETIL
     Dosage: 200 MILLIGRAM, BID (EVERY 12 HOURS)
     Dates: start: 20230110, end: 20230124
  89. SACCHAROMYCES CEREVISIAE [Suspect]
     Active Substance: SACCHAROMYCES CEREVISIAE
     Indication: Productive cough
     Dosage: 282.5 MILLIGRAM, BID (EVERY 12 HOURS)
     Dates: start: 20230110, end: 20230124
  90. SACCHAROMYCES CEREVISIAE [Suspect]
     Active Substance: SACCHAROMYCES CEREVISIAE
     Indication: Cough
     Dosage: 282.5 MILLIGRAM, BID (EVERY 12 HOURS)
     Route: 048
     Dates: start: 20230110, end: 20230124
  91. SACCHAROMYCES CEREVISIAE [Suspect]
     Active Substance: SACCHAROMYCES CEREVISIAE
     Dosage: 282.5 MILLIGRAM, BID (EVERY 12 HOURS)
     Route: 048
     Dates: start: 20230110, end: 20230124
  92. SACCHAROMYCES CEREVISIAE [Suspect]
     Active Substance: SACCHAROMYCES CEREVISIAE
     Dosage: 282.5 MILLIGRAM, BID (EVERY 12 HOURS)
     Dates: start: 20230110, end: 20230124

REACTIONS (1)
  - Femur fracture [Unknown]

NARRATIVE: CASE EVENT DATE: 20230201
